FAERS Safety Report 8480901-8 (Version None)
Quarter: 2012Q3

REPORT INFORMATION
  Report Type: 
  Country: None (occurrence: None)
  Receive Date: 20120702
  Receipt Date: 20120618
  Transmission Date: 20120928
  Serious: Yes (Disabling)
  Sender: FDA-Public Use
  Company Number: NG-MYLANLABS-2012S1012347

PATIENT
  Age: 55 Year

DRUGS (2)
  1. NEUROBION [Concomitant]
     Route: 065
  2. NAPROXEN [Suspect]
     Indication: ARTHRITIS
     Route: 065

REACTIONS (3)
  - BURNING SENSATION [None]
  - ABDOMINAL DISCOMFORT [None]
  - DYSPEPSIA [None]
